FAERS Safety Report 23898908 (Version 1)
Quarter: 2024Q2

REPORT INFORMATION
  Report Type: Spontaneous
  Country: US (occurrence: US)
  Receive Date: 20240525
  Receipt Date: 20240525
  Transmission Date: 20240716
  Serious: No
  Sender: FDA-Public Use
  Company Number: US-TEVA-VS-3197985

PATIENT
  Sex: Female

DRUGS (11)
  1. PENICILLIN [Suspect]
     Active Substance: PENICILLIN
     Indication: Product used for unknown indication
     Route: 065
  2. BETAMETHASONE [Concomitant]
     Active Substance: BETAMETHASONE\BETAMETHASONE DIPROPIONATE
  3. CETIRIZINE [Concomitant]
     Active Substance: CETIRIZINE HYDROCHLORIDE
  4. CLOBETASOL [Concomitant]
     Active Substance: CLOBETASOL
  5. CLOTRIMAZOLE [Concomitant]
     Active Substance: CLOTRIMAZOLE
  6. EPINEPHRINE [Concomitant]
     Active Substance: EPINEPHRINE
  7. FLUOCINONIDE [Concomitant]
     Active Substance: FLUOCINONIDE
  8. IBUPROFEN [Concomitant]
     Active Substance: IBUPROFEN
  9. TACROLIMUS [Concomitant]
     Active Substance: TACROLIMUS
  10. TOPIRAMATE [Concomitant]
     Active Substance: TOPIRAMATE
  11. TRIAMCINOLONE ACETONIDE [Concomitant]
     Active Substance: TRIAMCINOLONE ACETONIDE

REACTIONS (1)
  - Urticaria [Unknown]
